FAERS Safety Report 8006819-2 (Version None)
Quarter: 2011Q4

REPORT INFORMATION
  Report Type: 
  Country: None (occurrence: None)
  Receive Date: 20111227
  Receipt Date: 20111220
  Transmission Date: 20120403
  Serious: Yes (Other)
  Sender: FDA-Public Use
  Company Number: US-JNJFOC-20111208892

PATIENT
  Sex: Male
  Weight: 70.31 kg

DRUGS (5)
  1. DURAGESIC-100 [Suspect]
     Route: 062
     Dates: start: 20090101
  2. DURAGESIC-100 [Suspect]
     Indication: PAIN
     Route: 062
  3. PAXIL [Concomitant]
     Indication: ANXIETY
     Route: 048
     Dates: start: 20110101
  4. KLONOPIN [Concomitant]
     Indication: EMOTIONAL DISORDER
     Route: 048
     Dates: start: 20010101
  5. FLOMAX [Concomitant]
     Indication: PROSTATIC DISORDER
     Dates: start: 20090101

REACTIONS (4)
  - HAEMORRHAGE [None]
  - MEMORY IMPAIRMENT [None]
  - ROAD TRAFFIC ACCIDENT [None]
  - DRUG INEFFECTIVE [None]
